FAERS Safety Report 25864205 (Version 1)
Quarter: 2025Q3

REPORT INFORMATION
  Report Type: Spontaneous
  Country: CN (occurrence: CN)
  Receive Date: 20250930
  Receipt Date: 20250930
  Transmission Date: 20251020
  Serious: Yes (Hospitalization)
  Sender: NOVARTIS
  Company Number: CN-002147023-NVSC2025CN147046

PATIENT
  Age: 59 Year
  Sex: Male
  Weight: 92.9 kg

DRUGS (4)
  1. TAFINLAR [Suspect]
     Active Substance: DABRAFENIB MESYLATE
     Indication: Symptomatic treatment
     Dosage: 150 MG, BID
     Route: 048
     Dates: start: 20250108, end: 20250826
  2. TAFINLAR [Suspect]
     Active Substance: DABRAFENIB MESYLATE
     Route: 065
     Dates: start: 20250830
  3. MEKINIST [Suspect]
     Active Substance: TRAMETINIB DIMETHYL SULFOXIDE
     Indication: Symptomatic treatment
     Dosage: 2 MG, QD
     Route: 048
     Dates: start: 20250108, end: 20250826
  4. MEKINIST [Suspect]
     Active Substance: TRAMETINIB DIMETHYL SULFOXIDE
     Route: 065
     Dates: start: 20250830

REACTIONS (26)
  - Pyrexia [Recovering/Resolving]
  - Chills [Unknown]
  - Myalgia [Unknown]
  - Cough [Unknown]
  - Productive cough [Unknown]
  - Chromaturia [Unknown]
  - C-reactive protein increased [Unknown]
  - Aspartate aminotransferase increased [Unknown]
  - Alanine aminotransferase increased [Unknown]
  - Blood albumin decreased [Unknown]
  - Blood bilirubin increased [Unknown]
  - Blood creatine phosphokinase MB increased [Unknown]
  - Coagulopathy [Unknown]
  - Hypercoagulation [Unknown]
  - Hypotension [Unknown]
  - Septic shock [Unknown]
  - Hypovolaemic shock [Unknown]
  - Renal failure [Unknown]
  - T-lymphocyte count increased [Unknown]
  - Natural killer cell count increased [Unknown]
  - White blood cell count decreased [Unknown]
  - Serum ferritin increased [Unknown]
  - Neutrophil count decreased [Unknown]
  - Haemoglobin decreased [Unknown]
  - Platelet count decreased [Unknown]
  - N-terminal prohormone brain natriuretic peptide increased [Unknown]

NARRATIVE: CASE EVENT DATE: 20250822
